FAERS Safety Report 26108980 (Version 1)
Quarter: 2025Q4

REPORT INFORMATION
  Report Type: Spontaneous
  Country: US (occurrence: AU)
  Receive Date: 20251201
  Receipt Date: 20251201
  Transmission Date: 20260118
  Serious: No
  Sender: BIOCRYST PHARMACEUTICALS
  Company Number: AU-BIOCRYST PHARMACEUTICALS, INC.-2025BCR01434

PATIENT
  Age: 60 Year

DRUGS (1)
  1. ORLADEYO [Suspect]
     Active Substance: BEROTRALSTAT HYDROCHLORIDE
     Indication: Hereditary angioedema
     Dosage: 150 MG, QD

REACTIONS (2)
  - Sinusitis [Recovering/Resolving]
  - Ear infection [Recovering/Resolving]
